FAERS Safety Report 9454168 (Version 2)
Quarter: 2013Q3

REPORT INFORMATION
  Report Type: Spontaneous
  Country: JP (occurrence: JP)
  Receive Date: 20130812
  Receipt Date: 20130830
  Transmission Date: 20140515
  Serious: Yes (Other)
  Sender: FDA-Public Use
  Company Number: JP-ASTRAZENECA-2013SE62505

PATIENT
  Age: 30511 Day
  Sex: Female

DRUGS (8)
  1. NEXIUM [Suspect]
     Indication: STRESS ULCER
     Route: 048
     Dates: start: 20130612, end: 20130721
  2. BAYASPIRIN (NON AZ PRODUCT) [Suspect]
     Route: 065
  3. CONTOMIN [Suspect]
     Indication: AORTIC SURGERY
     Route: 048
     Dates: start: 20130713, end: 20130721
  4. ZYLORIC [Suspect]
     Indication: HYPERURICAEMIA
     Route: 048
     Dates: start: 20130714, end: 20130720
  5. PLAVIX [Suspect]
     Route: 065
  6. LASIX [Concomitant]
     Route: 048
     Dates: start: 20130612, end: 20130723
  7. ALDACTONE A [Concomitant]
     Route: 048
     Dates: start: 20130612, end: 20130723
  8. MAINTATE [Concomitant]
     Indication: CARDIAC FAILURE
     Route: 048
     Dates: start: 20130624, end: 20130721

REACTIONS (4)
  - Agranulocytosis [Recovered/Resolved]
  - Febrile neutropenia [Recovered/Resolved]
  - Erythema [Recovered/Resolved]
  - Urticaria [Recovered/Resolved]
